FAERS Safety Report 13958232 (Version 1)
Quarter: 2017Q3

REPORT INFORMATION
  Report Type: Spontaneous
  Country: PL (occurrence: PL)
  Receive Date: 20170912
  Receipt Date: 20170912
  Transmission Date: 20171128
  Serious: Yes (Death)
  Sender: FDA-Public Use
  Company Number: PHHY2017PL132216

PATIENT
  Age: 78 Year
  Sex: Male

DRUGS (5)
  1. MILURIT [Concomitant]
     Active Substance: ALLOPURINOL
     Indication: HYPERURICAEMIA
     Dosage: 100 MG, UNK
     Route: 048
     Dates: start: 20170425, end: 20170605
  2. METYPRED [Concomitant]
     Active Substance: METHYLPREDNISOLONE
     Indication: RHEUMATOID ARTHRITIS
     Dosage: 4 MG, UNK
     Route: 048
     Dates: start: 20170425, end: 20170605
  3. METHOTREXATE. [Suspect]
     Active Substance: METHOTREXATE
     Indication: RHEUMATOID ARTHRITIS
     Dosage: 15 MG, QW
     Route: 048
     Dates: start: 20170425, end: 20170605
  4. BIOTRAKSON [Concomitant]
     Active Substance: CEFTRIAXONE SODIUM
     Indication: PYREXIA
     Dosage: 2 G, UNK
     Route: 042
     Dates: start: 20170525, end: 20170605
  5. METRONIDAZOL [Concomitant]
     Active Substance: METRONIDAZOLE
     Indication: STOMATITIS
     Dosage: 500 MG, BID
     Route: 042
     Dates: start: 20170527, end: 20170605

REACTIONS (2)
  - Stomatitis [Fatal]
  - Bone marrow failure [Fatal]

NARRATIVE: CASE EVENT DATE: 20170601
